FAERS Safety Report 6381127-4 (Version None)
Quarter: 2009Q3

REPORT INFORMATION
  Report Type: 
  Country: None (occurrence: None)
  Receive Date: 20090929
  Receipt Date: 20090916
  Transmission Date: 20100115
  Serious: Yes (Hospitalization)
  Sender: FDA-Public Use
  Company Number: PE-MEDIMMUNE-MEDI-0008948

PATIENT
  Sex: Male
  Weight: 2.3 kg

DRUGS (1)
  1. SYNAGIS [Suspect]
     Route: 030
     Dates: start: 20090707, end: 20090819

REACTIONS (4)
  - BRONCHIAL OBSTRUCTION [None]
  - CYANOSIS [None]
  - DYSPNOEA [None]
  - IRRITABILITY [None]
